FAERS Safety Report 15641538 (Version 2)
Quarter: 2019Q1

REPORT INFORMATION
  Report Type: Spontaneous
  Country: US (occurrence: US)
  Receive Date: 20181120
  Receipt Date: 20190109
  Transmission Date: 20190417
  Serious: No
  Sender: FDA-Public Use
  Company Number: US-ASTRAZENECA-2018SF41127

PATIENT
  Sex: Female
  Weight: 54 kg

DRUGS (1)
  1. SYMBICORT [Suspect]
     Active Substance: BUDESONIDE\FORMOTEROL FUMARATE DIHYDRATE
     Indication: CHRONIC OBSTRUCTIVE PULMONARY DISEASE
     Dosage: 160/ 4.5 MCG 2 INHALATIONS TWICE A DAY
     Route: 055
     Dates: start: 2013

REACTIONS (5)
  - Cataract [Unknown]
  - Drug ineffective [Unknown]
  - Night blindness [Unknown]
  - Blood cholesterol increased [Unknown]
  - Device malfunction [Unknown]
